FAERS Safety Report 6534070-1 (Version None)
Quarter: 2009Q4

REPORT INFORMATION
  Report Type: 
  Country: None (occurrence: None)
  Receive Date: 20091214
  Receipt Date: 20081016
  Transmission Date: 20100525
  Serious: Yes (Other)
  Sender: FDA-Public Use
  Company Number: 588740

PATIENT
  Age: 45 Year
  Sex: Female

DRUGS (4)
  1. PEGASYS [Suspect]
     Indication: HEPATITIS C
     Dosage: 180 UG SUBCUTANEOUS
     Route: 058
     Dates: start: 20080512, end: 20080928
  2. COPEGUS [Suspect]
     Indication: HEPATITIS C
     Dosage: 1000 MG
     Dates: start: 20080512
  3. RIBAVIRIN [Suspect]
     Indication: HEPATITIS C
     Dosage: 1000 MG DAILY
     Dates: end: 20081003
  4. LORTAB [Concomitant]

REACTIONS (7)
  - ANTISOCIAL BEHAVIOUR [None]
  - ANXIETY [None]
  - BONE PAIN [None]
  - FATIGUE [None]
  - FORMICATION [None]
  - HEADACHE [None]
  - SUICIDE ATTEMPT [None]
